FAERS Safety Report 16856268 (Version 8)
Quarter: 2021Q1

REPORT INFORMATION
  Report Type: Spontaneous
  Country: US (occurrence: US)
  Receive Date: 20190926
  Receipt Date: 20210226
  Transmission Date: 20210419
  Serious: Yes (Other)
  Sender: FDA-Public Use
  Company Number: US-PFIZER INC-2019092617

PATIENT
  Age: 56 Year
  Sex: Female
  Weight: 66 kg

DRUGS (8)
  1. LYRICA [Suspect]
     Active Substance: PREGABALIN
     Indication: PAIN
     Dosage: 50 MG, TWICE DAILY
     Route: 048
  2. LYRICA [Suspect]
     Active Substance: PREGABALIN
     Indication: SPINAL CORD DISORDER
     Dosage: 75 MG, TWICE DAILY
     Route: 048
     Dates: end: 20190301
  3. LYRICA [Suspect]
     Active Substance: PREGABALIN
     Indication: NEURALGIA
     Dosage: 50 MG, UNK
     Route: 048
  4. LYRICA [Suspect]
     Active Substance: PREGABALIN
     Dosage: 50 MG, 2X/DAY
     Route: 048
  5. LYRICA [Suspect]
     Active Substance: PREGABALIN
     Indication: SPINAL CORD INJURY THORACIC
     Dosage: 75 MG, 2X/DAY
     Route: 048
     Dates: start: 201910
  6. LYRICA [Suspect]
     Active Substance: PREGABALIN
     Dosage: 125 MG, DAILY (50MG IN THE MORNING AND 75MG IN THE EVENING)
     Route: 048
  7. LYRICA [Suspect]
     Active Substance: PREGABALIN
     Dosage: 50 MG, 1X/DAY (1 CAPSULE EVERY MORNING)
     Route: 048
  8. LYRICA [Suspect]
     Active Substance: PREGABALIN
     Indication: NECK PAIN
     Dosage: 75 MG, 1X/DAY (NIGHT)
     Route: 048

REACTIONS (5)
  - Therapeutic product effect incomplete [Unknown]
  - Impaired driving ability [Unknown]
  - Thinking abnormal [Unknown]
  - Wrist fracture [Unknown]
  - Tremor [Unknown]

NARRATIVE: CASE EVENT DATE: 201910
